FAERS Safety Report 6924855-1 (Version None)
Quarter: 2010Q3

REPORT INFORMATION
  Report Type: 
  Country: None (occurrence: None)
  Receive Date: 20100816
  Receipt Date: 20100805
  Transmission Date: 20110219
  Serious: Yes (Other)
  Sender: FDA-Public Use
  Company Number: CH-ASTRAZENECA-2010SE36895

PATIENT
  Age: 16 Year
  Sex: Female

DRUGS (4)
  1. SEROQUEL [Suspect]
     Route: 048
     Dates: end: 20090805
  2. METOPROLOL SUCCINATE [Suspect]
     Indication: MIGRAINE
     Route: 048
     Dates: end: 20100204
  3. DEPAKENE [Suspect]
     Indication: BIPOLAR DISORDER
     Dates: end: 20090805
  4. LORAZEPAM [Suspect]
     Dates: end: 20091027

REACTIONS (1)
  - DRUG EXPOSURE DURING PREGNANCY [None]
